FAERS Safety Report 15617192 (Version 1)
Quarter: 2018Q4

REPORT INFORMATION
  Report Type: Spontaneous
  Country: FR (occurrence: FR)
  Receive Date: 20181114
  Receipt Date: 20181114
  Transmission Date: 20190205
  Serious: Yes (Hospitalization, Other)
  Sender: FDA-Public Use
  Company Number: FR-PFIZER INC-2018460225

PATIENT
  Age: 75 Year
  Sex: Male
  Weight: 99 kg

DRUGS (7)
  1. ENTRESTO [Suspect]
     Active Substance: SACUBITRIL\VALSARTAN
     Indication: CARDIAC FAILURE
     Dosage: 2 DF, 1X/DAY
     Route: 048
     Dates: end: 20181011
  2. FUROSEMIDE. [Concomitant]
     Active Substance: FUROSEMIDE
     Dosage: 125 MG, 1X/DAY
     Route: 048
  3. INSPRA [Suspect]
     Active Substance: EPLERENONE
     Indication: CARDIAC FAILURE
     Dosage: 25 MG, 1X/DAY
     Route: 048
     Dates: end: 20180929
  4. NOVOMIX [Concomitant]
     Active Substance: INSULIN ASPART
     Dosage: 10 IU, 1X/DAY
     Route: 058
  5. SEEBRI BREEZHALER [Concomitant]
     Active Substance: GLYCOPYRROLATE
     Dosage: 1 DF, 1X/DAY
     Route: 055
  6. FLUINDIONE [Concomitant]
     Active Substance: FLUINDIONE
     Dosage: 1 DF, 1X/DAY
     Route: 048
  7. ZYMAD [Concomitant]
     Active Substance: CHOLECALCIFEROL
     Dosage: 1 DF, MONTHLY
     Route: 048

REACTIONS (2)
  - Acute kidney injury [Recovered/Resolved]
  - Eczema [Not Recovered/Not Resolved]

NARRATIVE: CASE EVENT DATE: 201809
